FAERS Safety Report 8885407 (Version 1)
Quarter: 2012Q4

REPORT INFORMATION
  Report Type: Report from Study
  Country: DE (occurrence: DE)
  Receive Date: 20121102
  Receipt Date: 20121102
  Transmission Date: 20130627
  Serious: Yes (Disabling)
  Sender: FDA-Public Use
  Company Number: DE-BAXTER-2012BAX021603

PATIENT
  Sex: Female

DRUGS (6)
  1. ENDOXAN [Suspect]
     Indication: B-CELL LYMPHOMA
     Route: 042
     Dates: start: 20120921, end: 20120921
  2. RITUXIMAB [Suspect]
     Indication: B-CELL LYMPHOMA
     Route: 042
     Dates: start: 20120920, end: 20120920
  3. DOXORUBICIN [Suspect]
     Indication: B-CELL LYMPHOMA
     Route: 042
     Dates: start: 20120921, end: 20120921
  4. VINCRISTINE [Suspect]
     Indication: B-CELL LYMPHOMA
     Route: 042
     Dates: start: 20120927, end: 20120927
  5. PREDNISONE [Suspect]
     Indication: B-CELL LYMPHOMA
     Route: 065
     Dates: start: 20120921, end: 20120925
  6. PEGFILGRASTIM [Suspect]
     Indication: B-CELL LYMPHOMA
     Route: 058
     Dates: start: 20120924, end: 20120924

REACTIONS (1)
  - Polyneuropathy [Not Recovered/Not Resolved]
